FAERS Safety Report 4890100-4 (Version None)
Quarter: 2005Q4

REPORT INFORMATION
  Report Type: 
  Country: None (occurrence: None)
  Receive Date: 20051215
  Receipt Date: 20050105
  Transmission Date: 20060501
  Serious: Yes (Other)
  Sender: FDA-Public Use
  Company Number: 2004094052

PATIENT
  Age: 53 Year
  Sex: Female
  Weight: 48.9885 kg

DRUGS (7)
  1. BEXTRA [Suspect]
     Indication: OSTEOARTHRITIS
     Dosage: 10 MG (10 MG, 1 IN 1 D), ORAL
     Route: 048
     Dates: start: 20000101
  2. MINOCYCLINE HCL [Concomitant]
  3. TUSSIN DM (DEXTROMETHORPHAN HYDROBROMIDE, GUAIFENESIN) [Concomitant]
  4. ALENDRONATE SODIUM [Concomitant]
  5. LACTULOSE [Concomitant]
  6. MACROGOL (MACROGOL) [Concomitant]
  7. BENZOYL PEROXIDE (BENZOYL PEROXIDE) [Concomitant]

REACTIONS (4)
  - ABDOMINAL PAIN [None]
  - CYST [None]
  - NEPHROLITHIASIS [None]
  - PELVIC PAIN [None]
